FAERS Safety Report 4500140-2 (Version None)
Quarter: 2004Q4

REPORT INFORMATION
  Report Type: 
  Country: None (occurrence: None)
  Receive Date: 20041112
  Receipt Date: 20041104
  Transmission Date: 20050328
  Serious: Yes (Hospitalization)
  Sender: FDA-Public Use
  Company Number: US-ROCHE-385481

PATIENT

DRUGS (3)
  1. MYCOPHENOLATE MOFETIL [Suspect]
     Route: 048
  2. THYMOGLOBULIN [Suspect]
     Dosage: ON DAYS 0,1,2,4,6.
     Route: 065
  3. PREDNISONE [Suspect]
     Dosage: 500 MG DAILY TAPERED TO 10 MG DAILY BY DAY 52.
     Route: 065

REACTIONS (3)
  - INCISIONAL HERNIA [None]
  - INGUINAL HERNIA, OBSTRUCTIVE [None]
  - SMALL INTESTINAL OBSTRUCTION [None]
